FAERS Safety Report 10883042 (Version 2)
Quarter: 2015Q1

REPORT INFORMATION
  Report Type: Report from Study
  Country: MX (occurrence: MX)
  Receive Date: 20150303
  Receipt Date: 20150326
  Transmission Date: 20150721
  Serious: Yes (Other)
  Sender: FDA-Public Use
  Company Number: MX-SA-2015SA024714

PATIENT
  Sex: Male

DRUGS (1)
  1. SHORANT [Suspect]
     Active Substance: INSULIN GLULISINE
     Route: 058

REACTIONS (1)
  - Chronic kidney disease [Unknown]
